FAERS Safety Report 8032752 (Version 2)
Quarter: 2012Q4

REPORT INFORMATION
  Report Type: 
  Country: US (occurrence: US)
  Receive Date: 20110713
  Receipt Date: 20121115
  Transmission Date: 20130627
  Serious: Yes (Other)
  Sender: FDA-Public Use
  Company Number: US-ELI_LILLY_AND_COMPANY-US201107002478

PATIENT
  Age: 61 Year
  Sex: Male

DRUGS (1)
  1. BYETTA [Suspect]
     Dosage: UNK
     Dates: start: 200703, end: 20080921

REACTIONS (3)
  - Pancreatitis chronic [Unknown]
  - Cholecystitis chronic [Recovered/Resolved]
  - Pancreatitis acute [Unknown]
